FAERS Safety Report 7165055-2 (Version None)
Quarter: 2010Q4

REPORT INFORMATION
  Report Type: 
  Country: None (occurrence: None)
  Receive Date: 20101215
  Receipt Date: 20091216
  Transmission Date: 20110411
  Serious: No
  Sender: FDA-Public Use
  Company Number: US-AMGEN-KDL380658

PATIENT

DRUGS (11)
  1. ENBREL [Suspect]
     Indication: PRODUCT USED FOR UNKNOWN INDICATION
     Dosage: 50 MG, QWK
     Route: 058
  2. HYDROXYCHLOROQUINE SULFATE [Concomitant]
     Dosage: 200 MG, UNK
  3. SERTRALINE [Concomitant]
     Dosage: 25 MG, UNK
  4. METHOTREXATE [Concomitant]
     Dosage: 2.5 MG, UNK
  5. PREDNISONE [Concomitant]
     Dosage: 2.5 MG, UNK
  6. LISINOPRIL [Concomitant]
     Dosage: 10 MG, UNK
  7. OSCAL [Concomitant]
     Dosage: UNK UNK, UNK
  8. FOLIC ACID [Concomitant]
     Dosage: 1 MG, UNK
  9. ERGOCALCIFEROL [Concomitant]
     Dosage: UNK UNK, UNK
  10. ACETAMINOPHEN AND OXYCODONE HCL [Concomitant]
     Dosage: UNK UNK, UNK
  11. BLACK COHOSH [Concomitant]
     Dosage: 40 MG, UNK

REACTIONS (1)
  - VULVOVAGINAL MYCOTIC INFECTION [None]
